FAERS Safety Report 4597623-6 (Version None)
Quarter: 2005Q1

REPORT INFORMATION
  Report Type: 
  Country: None (occurrence: None)
  Receive Date: 20050303
  Receipt Date: 20050103
  Transmission Date: 20050727
  Serious: Yes (Disabling)
  Sender: FDA-Public Use
  Company Number: US-BRISTOL-MYERS SQUIBB COMPANY-12812277

PATIENT
  Age: 7 Year
  Sex: Male

DRUGS (1)
  1. CEFZIL [Suspect]
     Indication: EAR INFECTION
     Dosage: DOSE 250 MG/5ML: ONE TEASPOON TWICE DAILY
     Route: 048
     Dates: start: 20041227, end: 20050108

REACTIONS (10)
  - ARTHRALGIA [None]
  - BACK PAIN [None]
  - DIFFICULTY IN WALKING [None]
  - NAUSEA [None]
  - OEDEMA PERIPHERAL [None]
  - RASH [None]
  - RASH GENERALISED [None]
  - SERUM SICKNESS [None]
  - SWELLING [None]
  - VOMITING [None]
